FAERS Safety Report 21343549 (Version 1)
Quarter: 2022Q3

REPORT INFORMATION
  Report Type: Spontaneous
  Country: US (occurrence: None)
  Receive Date: 20220916
  Receipt Date: 20220916
  Transmission Date: 20221027
  Serious: Yes (Hospitalization)
  Sender: FDA-Public Use
  Company Number: None

PATIENT
  Sex: Male
  Weight: 120.66 kg

DRUGS (2)
  1. APIXABAN [Suspect]
     Active Substance: APIXABAN
     Indication: Pulmonary embolism
     Dosage: FREQUENCY : TWICE A DAY;?
     Route: 048
     Dates: start: 20220622, end: 20220822
  2. APIXABAN [Suspect]
     Active Substance: APIXABAN
     Indication: Deep vein thrombosis

REACTIONS (6)
  - Faeces discoloured [None]
  - Anaemia [None]
  - Treatment noncompliance [None]
  - Blood loss anaemia [None]
  - Hypotension [None]
  - Adenocarcinoma gastric [None]

NARRATIVE: CASE EVENT DATE: 20220809
